FAERS Safety Report 16851005 (Version 1)
Quarter: 2019Q3

REPORT INFORMATION
  Report Type: Spontaneous
  Country: FR (occurrence: FR)
  Receive Date: 20190925
  Receipt Date: 20190925
  Transmission Date: 20191005
  Serious: Yes (Other)
  Sender: FDA-Public Use
  Company Number: FR-PFIZER INC-2019407217

PATIENT
  Age: 34 Year
  Sex: Male

DRUGS (3)
  1. IMOVANE [Concomitant]
     Active Substance: ZOPICLONE
     Dosage: 1 IN THE MORNING AND 1 IN THE EVENING
  2. XANAX [Suspect]
     Active Substance: ALPRAZOLAM
     Dosage: 4 DF, DAILY PRESCRIBED
     Route: 065
  3. TOBACCO [Suspect]
     Active Substance: TOBACCO LEAF
     Indication: TOBACCO USER
     Dosage: 10/DAY
     Route: 055
     Dates: start: 1999

REACTIONS (2)
  - Drug dependence [Recovering/Resolving]
  - Drug abuse [Recovering/Resolving]
